FAERS Safety Report 15746924 (Version 1)
Quarter: 2018Q4

REPORT INFORMATION
  Report Type: Report from Study
  Country: DE (occurrence: DE)
  Receive Date: 20181220
  Receipt Date: 20181220
  Transmission Date: 20190205
  Serious: Yes (Hospitalization, Other)
  Sender: FDA-Public Use
  Company Number: DE-CELGENEUS-DEU-20181102194

PATIENT
  Age: 37 Year
  Sex: Female
  Weight: 78 kg

DRUGS (7)
  1. CYCLOPHOSPHAMIDE. [Suspect]
     Active Substance: CYCLOPHOSPHAMIDE
     Indication: BREAST CANCER
     Dosage: 1170 MILLIGRAM
     Route: 041
     Dates: start: 20181023, end: 20181023
  2. G-CSF [Concomitant]
     Active Substance: GRANULOCYTE COLONY-STIMULATING FACTOR NOS
     Indication: NEUTROPENIA
     Route: 065
  3. DENOSUMAB [Suspect]
     Active Substance: DENOSUMAB
     Indication: BREAST CANCER
     Dosage: 120 MILLIGRAM
     Route: 030
     Dates: start: 20180724, end: 20181016
  4. ABRAXANE [Suspect]
     Active Substance: PACLITAXEL
     Indication: BREAST CANCER
     Dosage: 244 MILLIGRAM
     Route: 041
     Dates: start: 20180724, end: 20181009
  5. EPIRUBICIN [Suspect]
     Active Substance: EPIRUBICIN
     Indication: BREAST CANCER
     Dosage: 176 MILLIGRAM
     Route: 041
     Dates: start: 20181023, end: 20181023
  6. CARBOPLATIN. [Suspect]
     Active Substance: CARBOPLATIN
     Indication: BREAST CANCER
     Dosage: 252 MILLIGRAM
     Route: 041
     Dates: start: 20180724, end: 20181016
  7. MESALAZINE [Concomitant]
     Active Substance: MESALAMINE
     Indication: NEUTROPENIA
     Route: 065
     Dates: start: 20181024, end: 20181106

REACTIONS (1)
  - Colitis [Recovered/Resolved]

NARRATIVE: CASE EVENT DATE: 20181105
